FAERS Safety Report 11107027 (Version 1)
Quarter: 2015Q2

REPORT INFORMATION
  Report Type: Spontaneous
  Country: IL (occurrence: None)
  Receive Date: 20150508
  Receipt Date: 20150508
  Transmission Date: 20150821
  Serious: Yes (Life-Threatening, Hospitalization)
  Sender: FDA-Public Use
  Company Number: 2015/037

PATIENT
  Age: 34 Year
  Sex: Male

DRUGS (4)
  1. SIMVASTATIN. [Concomitant]
     Active Substance: SIMVASTATIN
  2. OLANZAPINE. [Concomitant]
     Active Substance: OLANZAPINE
  3. ESCITALOPRAM [Concomitant]
     Active Substance: ESCITALOPRAM OXALATE
  4. TERBINAFINE [Suspect]
     Active Substance: TERBINAFINE
     Indication: ONYCHOMYCOSIS
     Dosage: APPROXIMATELY 2 WEEKS?250 MG, OD + UNK?

REACTIONS (5)
  - Anaemia [None]
  - Blood lactate dehydrogenase increased [None]
  - Thrombocytopenia [None]
  - Disease recurrence [None]
  - Thrombotic thrombocytopenic purpura [None]
